FAERS Safety Report 25080742 (Version 2)
Quarter: 2025Q4

REPORT INFORMATION
  Report Type: Spontaneous
  Country: EU (occurrence: EU)
  Receive Date: 20250315
  Receipt Date: 20251110
  Transmission Date: 20260117
  Serious: Yes (Other)
  Sender: AUROBINDO
  Company Number: EU-FAMHP-DHH-N2025-124169

PATIENT
  Sex: Female
  Weight: 70 kg

DRUGS (1)
  1. ACETAMINOPHEN [Suspect]
     Active Substance: ACETAMINOPHEN
     Indication: Product used for unknown indication
     Dosage: 10 GRAM 1 TOTAL
     Route: 048

REACTIONS (2)
  - Alcohol poisoning [Not Recovered/Not Resolved]
  - Intentional overdose [Not Recovered/Not Resolved]
